FAERS Safety Report 7503684-4 (Version None)
Quarter: 2011Q2

REPORT INFORMATION
  Report Type: 
  Country: None (occurrence: None)
  Receive Date: 20110525
  Receipt Date: 20110520
  Transmission Date: 20111010
  Serious: Yes (Other)
  Sender: FDA-Public Use
  Company Number: US-AMGEN-USASP2011026619

PATIENT
  Sex: Female
  Weight: 53.515 kg

DRUGS (1)
  1. NPLATE [Suspect]
     Indication: THROMBOCYTOPENIA
     Dosage: 50 A?G, ONE TIME DOSE
     Dates: start: 20090804, end: 20090804

REACTIONS (1)
  - APLASTIC ANAEMIA [None]
